FAERS Safety Report 7371207-9 (Version None)
Quarter: 2011Q1

REPORT INFORMATION
  Report Type: 
  Country: None (occurrence: None)
  Receive Date: 20110324
  Receipt Date: 20110222
  Transmission Date: 20110831
  Serious: Yes (Hospitalization)
  Sender: FDA-Public Use
  Company Number: US-BAYER-201030183NA

PATIENT
  Sex: Female
  Weight: 108.84 kg

DRUGS (3)
  1. OCELLA [Suspect]
     Indication: CONTRACEPTION
     Dosage: UNK
     Dates: start: 20080701, end: 20080815
  2. SYNTHROID [Concomitant]
     Dosage: 125 ?G, UNK
  3. YASMIN [Suspect]
     Indication: CONTRACEPTION
     Dosage: UNK
     Dates: start: 20070701, end: 20080615

REACTIONS (2)
  - DEEP VEIN THROMBOSIS [None]
  - PAIN [None]
